FAERS Safety Report 7004927-6 (Version None)
Quarter: 2010Q3

REPORT INFORMATION
  Report Type: 
  Country: None (occurrence: None)
  Receive Date: 20100921
  Receipt Date: 20100915
  Transmission Date: 20110219
  Serious: Yes (Other)
  Sender: FDA-Public Use
  Company Number: US-TEVA-247525USA

PATIENT
  Sex: Female

DRUGS (5)
  1. PARAGARD T 380A [Suspect]
     Indication: CONTRACEPTION
     Route: 015
     Dates: start: 20100612
  2. IODINE [Suspect]
  3. PROPRANOLOL [Concomitant]
     Indication: HYPERTENSION
  4. AMLODIPINE [Concomitant]
     Indication: HYPERTENSION
  5. VALSARTAN [Concomitant]
     Indication: HYPERTENSION

REACTIONS (1)
  - ANAPHYLACTIC SHOCK [None]
